FAERS Safety Report 22189508 (Version 1)
Quarter: 2023Q2

REPORT INFORMATION
  Report Type: Spontaneous
  Country: US (occurrence: US)
  Receive Date: 20230410
  Receipt Date: 20230410
  Transmission Date: 20230722
  Serious: No
  Sender: FDA-Public Use
  Company Number: US-BoehringerIngelheim-2023-BI-230307

PATIENT
  Age: 55 Year
  Sex: Female

DRUGS (5)
  1. GILOTRIF [Suspect]
     Active Substance: AFATINIB
     Indication: Lung carcinoma cell type unspecified stage IV
     Dates: start: 202211
  2. GILOTRIF [Suspect]
     Active Substance: AFATINIB
     Indication: Metastases to kidney
  3. GILOTRIF [Suspect]
     Active Substance: AFATINIB
     Indication: Metastases to central nervous system
  4. MEMANTINE [Concomitant]
     Active Substance: MEMANTINE
     Indication: Brain cancer metastatic
  5. VITAMIN C [Concomitant]
     Active Substance: ASCORBIC ACID
     Indication: Product used for unknown indication

REACTIONS (2)
  - Nail cuticle fissure [Not Recovered/Not Resolved]
  - Dry skin [Not Recovered/Not Resolved]

NARRATIVE: CASE EVENT DATE: 20221201
